FAERS Safety Report 14030266 (Version 5)
Quarter: 2018Q3

REPORT INFORMATION
  Report Type: Spontaneous
  Country: JP (occurrence: JP)
  Receive Date: 20171001
  Receipt Date: 20180716
  Transmission Date: 20181010
  Serious: Yes (Other)
  Sender: FDA-Public Use
  Company Number: JP-WARNER CHILCOTT-2017-000321

PATIENT
  Age: 81 Year
  Sex: Female

DRUGS (1)
  1. RISEDRONATE SODIUM ? BP [Suspect]
     Active Substance: RISEDRONATE SODIUM
     Indication: OSTEOPOROSIS
     Dosage: UNK
     Route: 048
     Dates: start: 2009

REACTIONS (8)
  - Osteoarthritis [Unknown]
  - Fracture nonunion [Unknown]
  - Contusion [Unknown]
  - Fall [Unknown]
  - Ulna fracture [Not Recovered/Not Resolved]
  - Pseudarthrosis [Unknown]
  - Atypical fracture [Not Recovered/Not Resolved]
  - Ulna fracture [Not Recovered/Not Resolved]

NARRATIVE: CASE EVENT DATE: 201405
